FAERS Safety Report 9117428 (Version 2)
Quarter: 2013Q2

REPORT INFORMATION
  Report Type: Spontaneous
  Country: US (occurrence: US)
  Receive Date: 20130225
  Receipt Date: 20130408
  Transmission Date: 20140414
  Serious: Yes (Hospitalization)
  Sender: FDA-Public Use
  Company Number: US-BIOGENIDEC-2013BI011519

PATIENT
  Age: 57 Year
  Sex: Male

DRUGS (1)
  1. TYSABRI [Suspect]
     Indication: MULTIPLE SCLEROSIS
     Route: 042
     Dates: start: 20110215

REACTIONS (7)
  - Multiple sclerosis [Unknown]
  - Urinary tract infection [Unknown]
  - Hypothyroidism [Unknown]
  - Neurogenic bladder [Unknown]
  - Depression [Unknown]
  - Constipation [Unknown]
  - Anxiety disorder [Unknown]
